FAERS Safety Report 17798660 (Version 1)
Quarter: 2020Q2

REPORT INFORMATION
  Report Type: Spontaneous
  Country: US (occurrence: US)
  Receive Date: 20200518
  Receipt Date: 20200518
  Transmission Date: 20200714
  Serious: Yes (Other)
  Sender: FDA-Public Use
  Company Number: US-UPSHER-SMITH LABORATORIES, LLC-2020USL00282

PATIENT
  Sex: Male

DRUGS (2)
  1. UNSPECIFIED MEDICATIONS [Suspect]
     Active Substance: UNSPECIFIED INGREDIENT
     Indication: THYROID DISORDER
     Dosage: UNK
  2. AMIODARONE HYDROCHLORIDE. [Suspect]
     Active Substance: AMIODARONE HYDROCHLORIDE
     Indication: ATRIAL FIBRILLATION
     Dosage: UNK
     Route: 048
     Dates: start: 201503

REACTIONS (7)
  - Amnesia [Unknown]
  - Coordination abnormal [Unknown]
  - Confusional state [Unknown]
  - Unevaluable event [Unknown]
  - Off label use [Unknown]
  - Hyperthyroidism [Unknown]
  - Asthenia [Unknown]

NARRATIVE: CASE EVENT DATE: 201503
